FAERS Safety Report 4369024-7 (Version None)
Quarter: 2004Q2

REPORT INFORMATION
  Report Type: 
  Country: None (occurrence: None)
  Receive Date: 20040525
  Receipt Date: 20040512
  Transmission Date: 20050107
  Serious: Yes (Life-Threatening, Hospitalization)
  Sender: FDA-Public Use
  Company Number: DE-JNJFOC-20040502490

PATIENT
  Age: 56 Year
  Sex: Male

DRUGS (7)
  1. REMICADE [Suspect]
     Indication: RHEUMATOID ARTHRITIS
     Dosage: 300 MG, 1 IN 6 WEEK, INTRAVENOUS
     Route: 042
     Dates: start: 20030101, end: 20031201
  2. PREDNISONE [Concomitant]
  3. VIOXX [Concomitant]
  4. METHOTREXATE [Concomitant]
  5. ENELAPRIL (ENALAPRIL) [Concomitant]
  6. ZOCOR [Concomitant]
  7. KANLINOR (POTASSIUM TABLETS EFFERVESCENT) EFFERVESCENT [Concomitant]

REACTIONS (2)
  - PNEUMONIA HERPES VIRAL [None]
  - REFLUX OESOPHAGITIS [None]
